FAERS Safety Report 10189429 (Version 1)
Quarter: 2014Q2

REPORT INFORMATION
  Report Type: Spontaneous
  Country: US (occurrence: None)
  Receive Date: 20140521
  Receipt Date: 20140521
  Transmission Date: 20141212
  Serious: Yes (Hospitalization)
  Sender: FDA-Public Use
  Company Number: None

PATIENT
  Age: 78 Year
  Sex: Male

DRUGS (8)
  1. ZYTIGA 250 MG JAHSSEN BIOTECH [Suspect]
     Indication: PROSTATE CANCER
     Dosage: 1000 MG DAILY ORAL
     Route: 048
     Dates: start: 20130920
  2. GLIPIZIDE [Concomitant]
  3. BICALUTAMIDE [Concomitant]
  4. LOSARAN [Concomitant]
  5. LANTUS [Concomitant]
  6. FISH OIL [Concomitant]
  7. VITAMIN D [Concomitant]
  8. VITAMIN B [Concomitant]

REACTIONS (1)
  - Myopathy [None]
